FAERS Safety Report 15654577 (Version 3)
Quarter: 2021Q4

REPORT INFORMATION
  Report Type: Report from Study
  Country: US (occurrence: None)
  Receive Date: 20181126
  Receipt Date: 20211206
  Transmission Date: 20220303
  Serious: Yes (Death, Other)
  Sender: FDA-Public Use
  Company Number: US-ROCHE-2215463

PATIENT
  Age: 68 Year
  Sex: Female

DRUGS (3)
  1. ATEZOLIZUMAB [Suspect]
     Active Substance: ATEZOLIZUMAB
     Indication: Colorectal cancer metastatic
     Dosage: DURING SECOND TREAMENT CYCLE, LAST DOSE WAS ADMISTERED ON 21/FEB/2018?DURING SIXTH TREAMENT CYCLE, L
     Route: 042
     Dates: start: 20180131
  2. BEVACIZUMAB [Suspect]
     Active Substance: BEVACIZUMAB
     Indication: Colorectal cancer metastatic
     Dosage: DURING SECOND TREAMENT CYCLE, LAST DOSE WAS ADMISTERED ON 21/FEB/2018 AT 700MG?DURING SIXTH TREAMENT
     Route: 042
     Dates: start: 20180131
  3. CAPECITABINE [Suspect]
     Active Substance: CAPECITABINE
     Indication: Colorectal cancer metastatic
     Dosage: 2 WEEKS ON 1 WEEKS OFF BUT THIS IS TOTAL DOSE OVER 1ST 5 DAYS?DURING SECOND TREAMENT CYCLE, LAST DOS
     Route: 048
     Dates: start: 20180131

REACTIONS (2)
  - Palmar-plantar erythrodysaesthesia syndrome [Recovered/Resolved]
  - Sepsis [Fatal]

NARRATIVE: CASE EVENT DATE: 20180226
